FAERS Safety Report 10878072 (Version 1)
Quarter: 2015Q1

REPORT INFORMATION
  Report Type: Spontaneous
  Country: US (occurrence: None)
  Receive Date: 20150225
  Receipt Date: 20150225
  Transmission Date: 20150721
  Serious: Yes (Hospitalization)
  Sender: FDA-Public Use
  Company Number: None

PATIENT
  Age: 71 Year
  Sex: Male
  Weight: 378.4 kg

DRUGS (2)
  1. CASODEX [Suspect]
     Active Substance: BICALUTAMIDE
     Dates: end: 20150220
  2. LEUPROLIDE ACETATE. [Suspect]
     Active Substance: LEUPROLIDE ACETATE
     Dates: end: 20141215

REACTIONS (6)
  - Cardiac failure [None]
  - Peripheral swelling [None]
  - Malaise [None]
  - Pneumonia [None]
  - Ejection fraction decreased [None]
  - Dyspnoea [None]

NARRATIVE: CASE EVENT DATE: 20150216
